FAERS Safety Report 23617095 (Version 1)
Quarter: 2024Q1

REPORT INFORMATION
  Report Type: Spontaneous
  Country: PT (occurrence: PT)
  Receive Date: 20240311
  Receipt Date: 20240311
  Transmission Date: 20240409
  Serious: Yes (Hospitalization, Other)
  Sender: FDA-Public Use
  Company Number: PT-TECNIFAR-000280

PATIENT
  Age: 77 Year
  Sex: Female

DRUGS (2)
  1. NAPROXEN [Suspect]
     Active Substance: NAPROXEN
     Indication: Arthralgia
     Route: 050
  2. CELECOXIB [Suspect]
     Active Substance: CELECOXIB
     Indication: Arthralgia
     Route: 050

REACTIONS (3)
  - Eosinophilic pneumonia acute [Recovered/Resolved]
  - Dyspnoea [Recovered/Resolved]
  - Cough [Recovered/Resolved]
